FAERS Safety Report 24287534 (Version 1)
Quarter: 2024Q3

REPORT INFORMATION
  Report Type: Spontaneous
  Country: US (occurrence: None)
  Receive Date: 20240904
  Receipt Date: 20240904
  Transmission Date: 20241016
  Serious: Yes (Death)
  Sender: Public
  Company Number: None

PATIENT
  Age: 81 Year
  Sex: Male

DRUGS (2)
  1. PIFELTRO [Suspect]
     Active Substance: DORAVIRINE
     Indication: HIV infection
     Dosage: 100 MG  DAILY ORAL
     Route: 048
     Dates: start: 202204, end: 202406
  2. TIVICAY [Suspect]
     Active Substance: DOLUTEGRAVIR SODIUM
     Dosage: 50 MG DAILY ORAL
     Route: 048
     Dates: start: 202204, end: 202406

REACTIONS (1)
  - Death [None]

NARRATIVE: CASE EVENT DATE: 20240630
